FAERS Safety Report 15776909 (Version 1)
Quarter: 2018Q4

REPORT INFORMATION
  Report Type: Spontaneous
  Country: US (occurrence: US)
  Receive Date: 20181229
  Receipt Date: 20181229
  Transmission Date: 20190205
  Serious: No
  Sender: FDA-Public Use
  Company Number: None

PATIENT
  Age: 40 Year
  Sex: Female
  Weight: 85.5 kg

DRUGS (1)
  1. CERVIDIL [Suspect]
     Active Substance: DINOPROSTONE
     Indication: INDUCTION OF CERVIX RIPENING
     Route: 067
     Dates: start: 20181012, end: 20181013

REACTIONS (7)
  - Maternal distress during labour [None]
  - Delivery [None]
  - Maternal exposure during pregnancy [None]
  - Maternal drugs affecting foetus [None]
  - Uterine hypertonus [None]
  - Pain [None]
  - Haemorrhage [None]

NARRATIVE: CASE EVENT DATE: 20181013
